FAERS Safety Report 5645393-2 (Version None)
Quarter: 2008Q1

REPORT INFORMATION
  Report Type: 
  Country: None (occurrence: None)
  Receive Date: 20080229
  Receipt Date: 20080213
  Transmission Date: 20080703
  Serious: Yes (Life-Threatening, Hospitalization, Other)
  Sender: FDA-Public Use
  Company Number: KR-BAYER-200814031GPV

PATIENT
  Age: 39 Year
  Sex: Male

DRUGS (1)
  1. ASPIRIN [Suspect]
     Indication: ISCHAEMIC STROKE
     Dosage: TOTAL DAILY DOSE: 300 MG  UNIT DOSE: 300 MG
     Route: 048

REACTIONS (4)
  - APHASIA [None]
  - CEREBRAL HAEMORRHAGE [None]
  - CEREBRAL INFARCTION [None]
  - SPEECH DISORDER [None]
